FAERS Safety Report 10442593 (Version 3)
Quarter: 2014Q4

REPORT INFORMATION
  Report Type: Spontaneous
  Country: US (occurrence: US)
  Receive Date: 20140909
  Receipt Date: 20141013
  Transmission Date: 20150528
  Serious: Yes (Hospitalization)
  Sender: FDA-Public Use
  Company Number: US-SHIONOGI, INC.-2014000703

PATIENT
  Age: 67 Year
  Sex: Female

DRUGS (3)
  1. OSPHENA [Suspect]
     Active Substance: OSPEMIFENE
     Indication: DYSPAREUNIA
     Dosage: UNK
     Route: 065
     Dates: start: 20140129, end: 20140717
  2. OSPHENA [Suspect]
     Active Substance: OSPEMIFENE
     Indication: ATROPHIC VULVOVAGINITIS
  3. CLINDAMYCIN [Concomitant]
     Active Substance: CLINDAMYCIN\CLINDAMYCIN PHOSPHATE
     Indication: INFECTION

REACTIONS (5)
  - Drug ineffective [Unknown]
  - Infection [Unknown]
  - Vaginal disorder [Unknown]
  - Vaginal haemorrhage [Unknown]
  - Squamous cell carcinoma of the vagina [Unknown]

NARRATIVE: CASE EVENT DATE: 2014
